FAERS Safety Report 22104788 (Version 2)
Quarter: 2023Q1

REPORT INFORMATION
  Report Type: Spontaneous
  Country: US (occurrence: US)
  Receive Date: 20230316
  Receipt Date: 20230330
  Transmission Date: 20230417
  Serious: Yes (Hospitalization)
  Sender: FDA-Public Use
  Company Number: US-TEVA-2023-US-2865074

PATIENT
  Age: 54 Year
  Sex: Female

DRUGS (9)
  1. PREDNISONE [Suspect]
     Active Substance: PREDNISONE
     Indication: Immunosuppressant drug therapy
     Route: 065
  2. METHOTREXATE [Suspect]
     Active Substance: METHOTREXATE
     Indication: Immunosuppressant drug therapy
     Route: 065
  3. VORICONAZOLE [Suspect]
     Active Substance: VORICONAZOLE
     Indication: Medical device site joint infection
     Dosage: 600 MILLIGRAM DAILY;
     Route: 048
  4. VORICONAZOLE [Suspect]
     Active Substance: VORICONAZOLE
     Indication: Histoplasmosis
  5. ITRACONAZOLE [Suspect]
     Active Substance: ITRACONAZOLE
     Indication: Histoplasmosis
     Dosage: 400 MILLIGRAM DAILY;
     Route: 048
  6. ITRACONAZOLE [Suspect]
     Active Substance: ITRACONAZOLE
     Indication: Medical device site joint infection
  7. POSACONAZOLE [Suspect]
     Active Substance: POSACONAZOLE
     Indication: Histoplasmosis
     Dosage: 800 MILLIGRAM DAILY;
     Route: 065
  8. POSACONAZOLE [Suspect]
     Active Substance: POSACONAZOLE
     Indication: Medical device site joint infection
  9. Immune-globulin [Concomitant]
     Indication: Product used for unknown indication
     Route: 042

REACTIONS (6)
  - Diarrhoea [Unknown]
  - Rash [Unknown]
  - Blister [Unknown]
  - Erythema [Unknown]
  - Histoplasmosis [Recovered/Resolved]
  - Medical device site joint infection [Recovered/Resolved]
